FAERS Safety Report 8088373-2 (Version None)
Quarter: 2012Q1

REPORT INFORMATION
  Report Type: 
  Country: None (occurrence: None)
  Receive Date: 20120128
  Receipt Date: 20110529
  Transmission Date: 20120608
  Serious: No
  Sender: FDA-Public Use
  Company Number: US-ABBOTT-11P-163-0729230-00

PATIENT
  Age: 35 Year
  Sex: Female

DRUGS (3)
  1. METFFORMIN HYDROCHLORIDE [Concomitant]
     Indication: DIABETES MELLITUS
  2. HUMIRA [Suspect]
     Indication: PSORIATIC ARTHROPATHY
     Dates: start: 20101201
  3. LAMICTAL [Concomitant]
     Indication: BIPOLAR DISORDER
     Dosage: 150MG DAILY

REACTIONS (1)
  - INJECTION SITE HAEMORRHAGE [None]
